FAERS Safety Report 4531180-5 (Version None)
Quarter: 2004Q4

REPORT INFORMATION
  Report Type: 
  Country: None (occurrence: None)
  Receive Date: 20041216
  Receipt Date: 20041203
  Transmission Date: 20050328
  Serious: Yes (Hospitalization)
  Sender: FDA-Public Use
  Company Number: FR-2004-036563

PATIENT
  Age: 53 Year
  Sex: Male

DRUGS (1)
  1. SOTALOL HCL [Suspect]
     Indication: TACHYCARDIA
     Dosage: 80 G, 1X/DAY, ORAL
     Route: 048
     Dates: end: 20000101

REACTIONS (2)
  - ANGIONEUROTIC OEDEMA [None]
  - BRADYCARDIA [None]
